FAERS Safety Report 6699808-1 (Version None)
Quarter: 2010Q2

REPORT INFORMATION
  Report Type: 
  Country: None (occurrence: None)
  Receive Date: 20100428
  Receipt Date: 20090925
  Transmission Date: 20101027
  Serious: No
  Sender: FDA-Public Use
  Company Number: A0829428A

PATIENT
  Age: 86 Year
  Sex: Female
  Weight: 53 kg

DRUGS (2)
  1. LUXIQ [Suspect]
     Route: 061
     Dates: start: 20080601
  2. SIMVASTATIN [Concomitant]
     Indication: BLOOD CHOLESTEROL INCREASED
     Dosage: 10MG PER DAY
     Route: 048
     Dates: start: 20040101

REACTIONS (2)
  - ALOPECIA [None]
  - INAPPROPRIATE SCHEDULE OF DRUG ADMINISTRATION [None]
